FAERS Safety Report 9123406 (Version 1)
Quarter: 2013Q1

REPORT INFORMATION
  Report Type: Spontaneous
  Country: FR (occurrence: FR)
  Receive Date: 20130115
  Receipt Date: 20130115
  Transmission Date: 20140127
  Serious: Yes (Hospitalization)
  Sender: FDA-Public Use
  Company Number: FR-SANOFI-AVENTIS-2013SA002575

PATIENT
  Age: 74 Year
  Sex: Male
  Weight: 84 kg

DRUGS (22)
  1. LOVENOX [Suspect]
     Indication: PRODUCT USED FOR UNKNOWN INDICATION
     Dosage: STRENGTH: 4000 IU/ 0.4 ML
     Route: 058
     Dates: start: 20120925, end: 20121025
  2. OFLOCET [Suspect]
     Indication: STAPHYLOCOCCAL INFECTION
     Route: 042
     Dates: start: 20120928, end: 20121012
  3. OFLOCET [Suspect]
     Indication: STAPHYLOCOCCAL INFECTION
     Route: 048
     Dates: start: 20121012, end: 20121026
  4. RIFAMPICIN [Suspect]
     Indication: PRODUCT USED FOR UNKNOWN INDICATION
     Dosage: STRENGTH: 300 MG
     Route: 048
     Dates: start: 20121012, end: 20121026
  5. OXACILLIN [Concomitant]
     Route: 042
     Dates: start: 20120928, end: 20121012
  6. DIFFU K [Concomitant]
     Route: 048
  7. ACEBUTOLOL [Concomitant]
  8. CREON [Concomitant]
     Dosage: DOSE:25000 UNIT(S)
  9. ENALAPRIL [Concomitant]
     Route: 048
  10. EUPANTOL [Concomitant]
     Route: 048
  11. NATISPRAY [Concomitant]
  12. NOVOMIX [Concomitant]
  13. ZOLPIDEM [Concomitant]
  14. CALCIUM CARBONATE/ERGOCALCIFEROL/RETINOL [Concomitant]
  15. AERIUS [Concomitant]
  16. DOLIPRANE [Concomitant]
  17. ATARAX [Concomitant]
  18. LASILIX [Concomitant]
     Route: 048
  19. SERESTA [Concomitant]
  20. SPECIAFOLDINE [Concomitant]
  21. UVEDOSE [Concomitant]
  22. FERROUS SULFATE/VIT B1/VIT B6/VIT B12 [Concomitant]

REACTIONS (3)
  - Arthralgia [Unknown]
  - Renal failure acute [Recovering/Resolving]
  - Platelet count decreased [Recovered/Resolved]
